FAERS Safety Report 20607485 (Version 3)
Quarter: 2022Q4

REPORT INFORMATION
  Report Type: Report from Study
  Country: US (occurrence: None)
  Receive Date: 20220317
  Receipt Date: 20221130
  Transmission Date: 20230113
  Serious: Yes (Hospitalization, Other)
  Sender: FDA-Public Use
  Company Number: US-ROCHE-3048193

PATIENT
  Age: 78 Year
  Sex: Male
  Weight: 83.7 kg

DRUGS (8)
  1. VENETOCLAX [Suspect]
     Active Substance: VENETOCLAX
     Indication: Chronic lymphocytic leukaemia
     Dosage: SUBSEQUENT DOSES : 20 MG PO QD DAYS 1-7 CYCLE 3, 50 MG PO QD DAYS 8-14, CYCLE 3, 100 MG PO QD DAYS 1
     Route: 048
     Dates: start: 20220203, end: 20220203
  2. VENETOCLAX [Suspect]
     Active Substance: VENETOCLAX
     Dosage: LAST ADMINISTERED DATE: 17-JUN-2022
     Route: 048
     Dates: start: 20220602
  3. VENETOCLAX [Suspect]
     Active Substance: VENETOCLAX
     Dosage: LAST ADMINISTERED DATE: 17-JUN-2022?20 MG PO QD DAYS 1-7 CYCLE 3, 50 MG PO QD DAYS 8-14, CYCLE 3, 10
     Route: 048
     Dates: start: 20211209
  4. OBINUTUZUMAB [Suspect]
     Active Substance: OBINUTUZUMAB
     Indication: Chronic lymphocytic leukaemia
     Route: 041
     Dates: start: 20220203, end: 20220203
  5. OBINUTUZUMAB [Suspect]
     Active Substance: OBINUTUZUMAB
     Dosage: LAST ADMINISTERED DATE: 03-MAR-2022?100 MG IV ON C1D1, 900 MG IV ON C1D2, 1000 MG IV ON C1D8 + C1D15
     Route: 041
     Dates: start: 20211014
  6. IBRUTINIB [Suspect]
     Active Substance: IBRUTINIB
     Indication: Chronic lymphocytic leukaemia
     Route: 048
     Dates: start: 20220203
  7. IBRUTINIB [Suspect]
     Active Substance: IBRUTINIB
     Dosage: LAST ADMINISTERED DATE: 19-JUN-2022
     Route: 048
     Dates: start: 20211014
  8. IBRUTINIB [Suspect]
     Active Substance: IBRUTINIB
     Dosage: TOTAL DOSE ADMINISTERED: 9900 MG?LAST ADMINISTERED DATE: 18-JUN-2022
     Route: 048
     Dates: start: 20220527

REACTIONS (5)
  - Neutrophil count decreased [Unknown]
  - White blood cell count decreased [Unknown]
  - Fall [Recovered/Resolved]
  - Appendicitis [Recovered/Resolved with Sequelae]
  - Appendicectomy [Recovered/Resolved]

NARRATIVE: CASE EVENT DATE: 20220203
